FAERS Safety Report 15710612 (Version 3)
Quarter: 2019Q1

REPORT INFORMATION
  Report Type: Spontaneous
  Country: ES (occurrence: ES)
  Receive Date: 20181211
  Receipt Date: 20190128
  Transmission Date: 20190417
  Serious: Yes (Hospitalization, Other)
  Sender: FDA-Public Use
  Company Number: ES-PFIZER INC-2018503578

PATIENT
  Age: 45 Year
  Sex: Male

DRUGS (6)
  1. METHYLPREDNISOLONE SODIUM SUCCINATE. [Suspect]
     Active Substance: METHYLPREDNISOLONE SODIUM SUCCINATE
     Indication: RASH ERYTHEMATOUS
     Dosage: HIGH DOSE
  2. METHYLPREDNISOLONE SODIUM SUCCINATE. [Suspect]
     Active Substance: METHYLPREDNISOLONE SODIUM SUCCINATE
     Indication: PAPULE
  3. AMOXICILLIN CLAVULANIC ACID [Concomitant]
     Active Substance: AMOXICILLIN\CLAVULANIC ACID
     Dosage: 875 MG, 3X/DAY
     Route: 048
  4. LORATADINE. [Concomitant]
     Active Substance: LORATADINE
     Dosage: UNK
     Route: 048
  5. DEFLAZACORT [Suspect]
     Active Substance: DEFLAZACORT
     Dosage: 30 MG, 1X/DAY
  6. DEFLAZACORT [Suspect]
     Active Substance: DEFLAZACORT
     Indication: DRUG PROVOCATION TEST
     Dosage: 37.5 MG, UNK

REACTIONS (7)
  - Drug ineffective [Unknown]
  - Erythema multiforme [Recovered/Resolved]
  - Oral mucosa erosion [Recovered/Resolved]
  - Rash erythematous [Recovered/Resolved]
  - Oedema [Recovered/Resolved]
  - Oropharyngeal pain [Recovered/Resolved]
  - Papule [Recovered/Resolved]

NARRATIVE: CASE EVENT DATE: 201612
